FAERS Safety Report 24573452 (Version 1)
Quarter: 2024Q4

REPORT INFORMATION
  Report Type: Spontaneous
  Country: DE (occurrence: DE)
  Receive Date: 20241102
  Receipt Date: 20241102
  Transmission Date: 20250114
  Serious: Yes (Other)
  Sender: TEVA
  Company Number: DE-TEVA-VS-3259175

PATIENT
  Age: 80 Year
  Sex: Female

DRUGS (4)
  1. ACYCLOVIR [Suspect]
     Active Substance: ACYCLOVIR
     Indication: Immune system disorder
     Dosage: RATIOPHARM TABLETTEN 400MG,1X EVERY OTHER DAY
     Route: 048
     Dates: start: 202009, end: 202409
  2. COTRIM [Suspect]
     Active Substance: SULFAMETHOXAZOLE\TRIMETHOPRIM
     Indication: Product used for unknown indication
     Dosage: TIME INTERVAL: 0.33333333 WEEKS: 960
     Route: 065
     Dates: start: 202009, end: 202408
  3. LENALIDOMIDE [Concomitant]
     Active Substance: LENALIDOMIDE
     Indication: Product used for unknown indication
  4. PROBIOTICS NOS [Concomitant]
     Active Substance: PROBIOTICS NOS
     Indication: Product used for unknown indication

REACTIONS (5)
  - Pneumonia [Unknown]
  - Diarrhoea [Not Recovered/Not Resolved]
  - Inflammatory bowel disease [Unknown]
  - Off label use [Unknown]
  - Polyneuropathy [Unknown]

NARRATIVE: CASE EVENT DATE: 20200901
